FAERS Safety Report 9859962 (Version 1)
Quarter: 2014Q1

REPORT INFORMATION
  Report Type: Spontaneous
  Country: TR (occurrence: TR)
  Receive Date: 20140131
  Receipt Date: 20140131
  Transmission Date: 20141002
  Serious: Yes (Other)
  Sender: FDA-Public Use
  Company Number: TR-BAXTER-2014BAX004493

PATIENT
  Sex: Male

DRUGS (8)
  1. ENDOXAN 1G. IV [Suspect]
     Indication: MANTLE CELL LYMPHOMA
     Dosage: ON DAY 2
     Route: 042
  2. RITUXIMAB [Suspect]
     Indication: MANTLE CELL LYMPHOMA
     Dosage: ON DAY 1
     Route: 042
  3. ADRIAMYCIN [Suspect]
     Indication: MANTLE CELL LYMPHOMA
     Dosage: ON DAY 2
     Route: 042
  4. VINCRISTINE [Suspect]
     Indication: MANTLE CELL LYMPHOMA
     Dosage: ON DAY 2
     Route: 042
  5. METHYLPREDNISOLONE [Suspect]
     Indication: MANTLE CELL LYMPHOMA
     Dosage: ON DAYS 1-5
     Route: 065
  6. LISINOPRIL/HYDROCHLOROTHIAZIDE [Concomitant]
     Indication: PRODUCT USED FOR UNKNOWN INDICATION
     Route: 065
  7. DILTIAZEM [Concomitant]
     Indication: PRODUCT USED FOR UNKNOWN INDICATION
     Route: 065
  8. FUROSEMIDE [Concomitant]
     Indication: HYPERTENSION
     Route: 065

REACTIONS (1)
  - Vocal cord paralysis [Recovered/Resolved]
